FAERS Safety Report 12371940 (Version 1)
Quarter: 2016Q2

REPORT INFORMATION
  Report Type: Spontaneous
  Country: US (occurrence: US)
  Receive Date: 20160516
  Receipt Date: 20160516
  Transmission Date: 20160815
  Serious: Yes (Other)
  Sender: FDA-Public Use
  Company Number: US-NOVOPROD-491672

PATIENT
  Age: 76 Year
  Sex: Male

DRUGS (2)
  1. NOVOLIN R [Suspect]
     Active Substance: INSULIN HUMAN
     Indication: TYPE 1 DIABETES MELLITUS
     Dosage: 10 UNITS
     Route: 058
     Dates: start: 2011
  2. NOVOLIN N [Suspect]
     Active Substance: INSULIN HUMAN
     Indication: TYPE 1 DIABETES MELLITUS
     Dosage: 40 U
     Route: 058
     Dates: start: 2011

REACTIONS (5)
  - Blindness transient [Recovered/Resolved]
  - Blood glucose decreased [Recovered/Resolved]
  - Blindness [Not Recovered/Not Resolved]
  - Disorientation [Recovered/Resolved]
  - Blood glucose increased [Unknown]

NARRATIVE: CASE EVENT DATE: 2014
